FAERS Safety Report 10390649 (Version 1)
Quarter: 2014Q3

REPORT INFORMATION
  Report Type: Spontaneous
  Country: IT (occurrence: None)
  Receive Date: 20140814
  Receipt Date: 20140814
  Transmission Date: 20150326
  Serious: Yes (Hospitalization)
  Sender: FDA-Public Use
  Company Number: AUR-APL-2014-08418

PATIENT
  Age: 40 Year
  Sex: Female

DRUGS (3)
  1. ESCITALOPRAM [Suspect]
     Active Substance: ESCITALOPRAM OXALATE
     Indication: POSTPARTUM DEPRESSION
     Dosage: 15ML, SINGLE, ORAL
     Route: 048
     Dates: start: 20140731, end: 20140731
  2. ENTACT (ESCITALOPRAM OXALATE) [Concomitant]
  3. MIRTAZAPINE (MIRTAZAPINE) [Suspect]
     Active Substance: MIRTAZAPINE
     Indication: POSTPARTUM DEPRESSION
     Dosage: 300MG, TOTAL, ORAL
     Route: 048
     Dates: start: 20140731, end: 20140731

REACTIONS (2)
  - Tachycardia [None]
  - Drug abuse [None]

NARRATIVE: CASE EVENT DATE: 20140731
